FAERS Safety Report 23338126 (Version 3)
Quarter: 2024Q2

REPORT INFORMATION
  Report Type: Spontaneous
  Country: US (occurrence: US)
  Receive Date: 20231226
  Receipt Date: 20240520
  Transmission Date: 20240716
  Serious: No
  Sender: FDA-Public Use
  Company Number: US-SA-SAC20231218001579

PATIENT
  Age: 14 Year
  Sex: Female

DRUGS (2)
  1. DUPIXENT [Suspect]
     Active Substance: DUPILUMAB
     Indication: Eczema
     Dosage: 600MG, 1X
     Route: 058
     Dates: start: 20231116, end: 20231116
  2. DUPIXENT [Suspect]
     Active Substance: DUPILUMAB
     Dosage: 300 MG, QOW
     Route: 058
     Dates: start: 202312, end: 20231219

REACTIONS (9)
  - Oral pain [Unknown]
  - Diarrhoea [Unknown]
  - Dizziness [Unknown]
  - Rash [Unknown]
  - Blister [Unknown]
  - Condition aggravated [Unknown]
  - Skin burning sensation [Unknown]
  - Swelling face [Unknown]
  - Eczema [Not Recovered/Not Resolved]

NARRATIVE: CASE EVENT DATE: 20231206
